FAERS Safety Report 5261341-1 (Version None)
Quarter: 2007Q1

REPORT INFORMATION
  Report Type: 
  Country: None (occurrence: None)
  Receive Date: 20070307
  Receipt Date: 20070223
  Transmission Date: 20070707
  Serious: Yes (Hospitalization)
  Sender: FDA-Public Use
  Company Number: 2006-02647

PATIENT
  Age: 60 Year
  Sex: Female

DRUGS (10)
  1. VELCADE [Suspect]
     Indication: NON-HODGKIN'S LYMPHOMA
     Dosage: 2.80 IV BOLUS
     Dates: end: 20060101
  2. VELCADE [Suspect]
     Indication: NON-HODGKIN'S LYMPHOMA
     Dosage: 2.80 IV BOLUS
     Dates: start: 20060517, end: 20060808
  3. VELCADE [Suspect]
     Indication: NON-HODGKIN'S LYMPHOMA
     Dosage: 2.80 IV BOLUS
     Dates: start: 20060425
  4. PREDNISONE [Suspect]
     Indication: NON-HODGKIN'S LYMPHOMA
     Dates: start: 20060425, end: 20060814
  5. CYCLOPHOSPHAMIDE [Suspect]
     Indication: NON-HODGKIN'S LYMPHOMA
     Dosage: INTRAVENOUS; 1540.00 INTRAVENOUS
     Route: 042
     Dates: start: 20060516, end: 20060807
  6. CYCLOPHOSPHAMIDE [Suspect]
     Indication: NON-HODGKIN'S LYMPHOMA
     Dosage: INTRAVENOUS; 1540.00 INTRAVENOUS
     Route: 042
     Dates: start: 20060425
  7. RITUXIMAB(RITUXIMAB) SOLUTION [Suspect]
     Indication: NON-HODGKIN'S LYMPHOMA
     Dosage: INTRAVENOUS; 578.00 INTRAVENOUS; 544.00 INTRAVENOUS
     Route: 042
     Dates: start: 20060516, end: 20060717
  8. RITUXIMAB(RITUXIMAB) SOLUTION [Suspect]
     Indication: NON-HODGKIN'S LYMPHOMA
     Dosage: INTRAVENOUS; 578.00 INTRAVENOUS; 544.00 INTRAVENOUS
     Route: 042
     Dates: start: 20060807, end: 20060807
  9. RITUXIMAB(RITUXIMAB) SOLUTION [Suspect]
     Indication: NON-HODGKIN'S LYMPHOMA
     Dosage: INTRAVENOUS; 578.00 INTRAVENOUS; 544.00 INTRAVENOUS
     Route: 042
     Dates: end: 20060814
  10. RITUXIMAB(RITUXIMAB) SOLUTION [Suspect]
     Indication: NON-HODGKIN'S LYMPHOMA
     Dosage: INTRAVENOUS; 578.00 INTRAVENOUS; 544.00 INTRAVENOUS
     Route: 042
     Dates: start: 20060425

REACTIONS (2)
  - PNEUMONIA [None]
  - SINUS TACHYCARDIA [None]
